FAERS Safety Report 17390728 (Version 1)
Quarter: 2020Q1

REPORT INFORMATION
  Report Type: Report from Study
  Country: None (occurrence: CO)
  Receive Date: 20200207
  Receipt Date: 20200207
  Transmission Date: 20200409
  Serious: Yes (Other)
  Sender: FDA-Public Use
  Company Number: CO-ABBVIE-20K-036-3266214-00

PATIENT

DRUGS (6)
  1. NAPROXEN. [Concomitant]
     Active Substance: NAPROXEN
     Indication: PAIN
     Route: 048
     Dates: start: 20200129
  2. METOCARBAMOL [Concomitant]
     Active Substance: METHOCARBAMOL
     Indication: PAIN
     Route: 048
     Dates: start: 20200129
  3. CHOLIC ACID [Concomitant]
     Active Substance: CHOLIC ACID
     Indication: PRODUCT USED FOR UNKNOWN INDICATION
     Route: 048
  4. BETAMETHASONE. [Concomitant]
     Active Substance: BETAMETHASONE
     Indication: PAIN
     Route: 030
     Dates: start: 20200128
  5. HUMIRA [Suspect]
     Active Substance: ADALIMUMAB
     Indication: ANKYLOSING SPONDYLITIS
     Route: 058
     Dates: start: 20200108
  6. METHOTREXATE. [Concomitant]
     Active Substance: METHOTREXATE
     Indication: RHEUMATOID ARTHRITIS
     Route: 048

REACTIONS (7)
  - Dizziness [Not Recovered/Not Resolved]
  - Headache [Not Recovered/Not Resolved]
  - Depressed mood [Not Recovered/Not Resolved]
  - Loss of consciousness [Not Recovered/Not Resolved]
  - Vision blurred [Not Recovered/Not Resolved]
  - Head injury [Not Recovered/Not Resolved]
  - Spinal column injury [Not Recovered/Not Resolved]

NARRATIVE: CASE EVENT DATE: 20200125
